FAERS Safety Report 23457687 (Version 1)
Quarter: 2024Q1

REPORT INFORMATION
  Report Type: Spontaneous
  Country: US (occurrence: None)
  Receive Date: 20240130
  Receipt Date: 20240130
  Transmission Date: 20240410
  Serious: No
  Sender: FDA-Public Use
  Company Number: None

PATIENT
  Sex: Male

DRUGS (1)
  1. SIMPONI [Suspect]
     Active Substance: GOLIMUMAB
     Indication: Psoriatic arthropathy
     Dosage: OTHER QUANTITY : 50MG/0.5M;?FREQUENCY : MONTHLY;?
     Route: 058
     Dates: start: 20210329

REACTIONS (1)
  - Drug ineffective [None]
